FAERS Safety Report 8157047-1 (Version None)
Quarter: 2012Q1

REPORT INFORMATION
  Report Type: 
  Country: None (occurrence: None)
  Receive Date: 20120222
  Receipt Date: 20120216
  Transmission Date: 20120608
  Serious: Yes (Other)
  Sender: FDA-Public Use
  Company Number: US-JNJFOC-20100205940

PATIENT
  Sex: Female
  Weight: 62.14 kg

DRUGS (3)
  1. EXTRA STRENGTH TYLENOL [Suspect]
     Route: 048
  2. EXTRA STRENGTH TYLENOL [Suspect]
     Indication: TOOTH ABSCESS
     Route: 048
     Dates: start: 20100118, end: 20100121
  3. AMOXICILLIN [Suspect]
     Indication: TOOTH ABSCESS
     Route: 065
     Dates: start: 20100101

REACTIONS (8)
  - SYNCOPE [None]
  - HAND FRACTURE [None]
  - PRODUCT QUALITY ISSUE [None]
  - DIARRHOEA [None]
  - VOMITING [None]
  - DEHYDRATION [None]
  - FALL [None]
  - NAUSEA [None]
